FAERS Safety Report 4396499-X (Version None)
Quarter: 2004Q3

REPORT INFORMATION
  Report Type: 
  Country: None (occurrence: None)
  Receive Date: 20040709
  Receipt Date: 20040623
  Transmission Date: 20050211
  Serious: Yes (Other)
  Sender: FDA-Public Use
  Company Number: JP-JNJFOC-20040701116

PATIENT
  Age: 38 Year
  Sex: Male

DRUGS (4)
  1. RISPERDAL [Suspect]
     Indication: SCHIZOPHRENIA
     Dosage: 6 MG, 1 IN 1 DAY, ORAL
     Route: 048
     Dates: start: 20030619
  2. SENNOSIDE (ALL OTHER THERAPEUTIC PRODUCTS) [Concomitant]
  3. FLUNITRAZEPAM (FLUNITRAZEPAM) [Concomitant]
  4. VALPROATE SODIUM [Concomitant]

REACTIONS (1)
  - HAEMOGLOBIN DECREASED [None]
